FAERS Safety Report 23185205 (Version 1)
Quarter: 2023Q4

REPORT INFORMATION
  Report Type: Other
  Country: DE (occurrence: None)
  Receive Date: 20231115
  Receipt Date: 20231115
  Transmission Date: 20240110
  Serious: Yes (Hospitalization)
  Sender: FDA-Public Use
  Company Number: DE-ROCHE-3455785

PATIENT
  Sex: Male
  Weight: 5.65 kg

DRUGS (1)
  1. OCRELIZUMAB [Suspect]
     Active Substance: OCRELIZUMAB
     Indication: Product used for unknown indication
     Route: 064
     Dates: start: 20211207, end: 20211207

REACTIONS (2)
  - Pyelonephritis [Recovered/Resolved]
  - Foetal exposure during pregnancy [Unknown]
